FAERS Safety Report 16291178 (Version 1)
Quarter: 2019Q2

REPORT INFORMATION
  Report Type: Spontaneous
  Country: US (occurrence: US)
  Receive Date: 20190509
  Receipt Date: 20190509
  Transmission Date: 20190711
  Serious: No
  Sender: FDA-Public Use
  Company Number: US-BAYER-2019-091445

PATIENT
  Age: 75 Year
  Sex: Male
  Weight: 79 kg

DRUGS (2)
  1. SIMVASTATIN. [Concomitant]
     Active Substance: SIMVASTATIN
  2. MIRALAX [Suspect]
     Active Substance: POLYETHYLENE GLYCOL 3350
     Indication: COLONOSCOPY
     Dosage: TOOK ALMOST A MIXED GALLON OVER 10HRS
     Route: 048
     Dates: start: 2011

REACTIONS (4)
  - Abdominal discomfort [Recovered/Resolved]
  - Circumstance or information capable of leading to medication error [Unknown]
  - Abdominal pain upper [Recovered/Resolved]
  - Off label use [Unknown]

NARRATIVE: CASE EVENT DATE: 2011
